FAERS Safety Report 11518931 (Version 2)
Quarter: 2018Q2

REPORT INFORMATION
  Report Type: Spontaneous
  Country: IT (occurrence: IT)
  Receive Date: 20150917
  Receipt Date: 20180423
  Transmission Date: 20180711
  Serious: Yes (Hospitalization)
  Sender: FDA-Public Use
  Company Number: PHHY2015IT110688

PATIENT
  Age: 73 Year
  Sex: Female

DRUGS (3)
  1. DOPAMINE [Concomitant]
     Active Substance: DOPAMINE\DOPAMINE HYDROCHLORIDE
     Indication: HYPOTENSION
     Route: 065
  2. METFORMIN [Suspect]
     Active Substance: METFORMIN HYDROCHLORIDE
     Indication: TYPE 2 DIABETES MELLITUS
     Dosage: 2 G, QD
     Route: 065
  3. METFORMIN [Suspect]
     Active Substance: METFORMIN HYDROCHLORIDE
     Indication: TYPE 2 DIABETES MELLITUS

REACTIONS (13)
  - Diarrhoea [Recovering/Resolving]
  - Blood creatinine increased [Unknown]
  - Metabolic acidosis [Unknown]
  - Dyspnoea [Recovering/Resolving]
  - Lactic acidosis [Recovering/Resolving]
  - Anuria [Unknown]
  - Asthenia [Recovering/Resolving]
  - Decreased appetite [Recovering/Resolving]
  - Acute kidney injury [Unknown]
  - Disorientation [Recovering/Resolving]
  - Gastrointestinal disorder [Unknown]
  - Vomiting [Unknown]
  - Hypotension [Unknown]
